FAERS Safety Report 9676080 (Version 2)
Quarter: 2013Q4

REPORT INFORMATION
  Report Type: Report from Study
  Country: CA (occurrence: CA)
  Receive Date: 20131107
  Receipt Date: 20131217
  Transmission Date: 20140711
  Serious: Yes (Other)
  Sender: FDA-Public Use
  Company Number: PHHY2013CA126516

PATIENT
  Sex: Female

DRUGS (3)
  1. CLOZARIL [Suspect]
     Dosage: UNK UKN, UNK
     Route: 048
     Dates: start: 20080721, end: 2010
  2. CLOZARIL [Suspect]
     Dosage: UNK UKN, UNK
     Dates: start: 201210, end: 201212
  3. CLOZARIL [Suspect]
     Dosage: UNK UKN, UNK
     Dates: end: 20130729

REACTIONS (1)
  - Right atrial dilatation [Unknown]
